FAERS Safety Report 5627968-X (Version None)
Quarter: 2008Q1

REPORT INFORMATION
  Report Type: 
  Country: None (occurrence: None)
  Receive Date: 20080215
  Receipt Date: 20080208
  Transmission Date: 20080703
  Serious: Yes (Other)
  Sender: FDA-Public Use
  Company Number: JP-TEVA-167406ISR

PATIENT
  Age: 4 Year
  Sex: Male

DRUGS (7)
  1. CISPLATIN [Suspect]
     Indication: NEUROBLASTOMA
  2. CYCLOPHOSPHAMIDE [Suspect]
     Indication: NEUROBLASTOMA
  3. TETRAHYDROPYRANIL-ADRIAMYCIN (DOXORUBIN) [Suspect]
     Indication: NEUROBLASTOMA
  4. VINCRISTINE [Suspect]
     Indication: NEUROBLASTOMA
  5. BUSULFAN [Concomitant]
  6. ETOPOSIDE [Concomitant]
  7. MELPHALAN [Concomitant]

REACTIONS (2)
  - OESOPHAGEAL VARICES HAEMORRHAGE [None]
  - VENOOCCLUSIVE LIVER DISEASE [None]
